FAERS Safety Report 5236221-8 (Version None)
Quarter: 2007Q1

REPORT INFORMATION
  Report Type: 
  Country: None (occurrence: None)
  Receive Date: 20070212
  Receipt Date: 20070131
  Transmission Date: 20070707
  Serious: Yes (Other)
  Sender: FDA-Public Use
  Company Number: US-PFIZER INC-2006103331

PATIENT
  Sex: Female
  Weight: 68.5 kg

DRUGS (3)
  1. BEXTRA [Suspect]
     Indication: ARTHROPATHY
  2. BEXTRA [Suspect]
     Indication: SCIATIC NERVE NEUROPATHY
  3. PREVACID [Concomitant]

REACTIONS (11)
  - ANXIETY [None]
  - BACK INJURY [None]
  - CONVULSION [None]
  - FALL [None]
  - HEAD INJURY [None]
  - HYPERTENSION [None]
  - LIGAMENT INJURY [None]
  - MEMORY IMPAIRMENT [None]
  - PERIORBITAL HAEMATOMA [None]
  - SCREAMING [None]
  - WRIST FRACTURE [None]
